FAERS Safety Report 7737697-4 (Version None)
Quarter: 2011Q3

REPORT INFORMATION
  Report Type: 
  Country: None (occurrence: None)
  Receive Date: 20110902
  Receipt Date: 20110819
  Transmission Date: 20111222
  Serious: Yes (Hospitalization)
  Sender: FDA-Public Use
  Company Number: 2011MA007858

PATIENT
  Age: 24 Year
  Sex: Male

DRUGS (5)
  1. CITALOPRAM HYDROBROMIDE [Suspect]
     Indication: DEPRESSION
     Dosage: 40 MG, PO
     Route: 048
     Dates: end: 20110510
  2. TEMAZEPAM [Concomitant]
  3. CODEINE SULFATE [Concomitant]
  4. FOLIC ACID [Concomitant]
  5. FERROUS SULFATE TAB [Concomitant]

REACTIONS (1)
  - DUODENAL ULCER PERFORATION [None]
